FAERS Safety Report 15111587 (Version 4)
Quarter: 2019Q1

REPORT INFORMATION
  Report Type: Report from Study
  Country: CA (occurrence: CA)
  Receive Date: 20180705
  Receipt Date: 20190228
  Transmission Date: 20190417
  Serious: Yes (Other)
  Sender: FDA-Public Use
  Company Number: CA-INCYTE CORPORATION-2018IN006531

PATIENT

DRUGS (6)
  1. JAKAVI [Suspect]
     Active Substance: RUXOLITINIB
     Indication: MYELOFIBROSIS
     Dosage: 5 MG, BID
     Route: 048
     Dates: start: 20171020, end: 20180605
  2. JAKAVI [Suspect]
     Active Substance: RUXOLITINIB
     Dosage: 10 MG, BID
     Route: 048
     Dates: start: 20180629
  3. JAKAVI [Suspect]
     Active Substance: RUXOLITINIB
     Dosage: 15 MG, QD (5 MG, QAM AND 10 MG, QPM)
     Route: 048
  4. JAKAVI [Suspect]
     Active Substance: RUXOLITINIB
     Dosage: 10 MG, BID
     Route: 065
  5. JADENU [Concomitant]
     Active Substance: DEFERASIROX
     Indication: IRON OVERLOAD
     Dosage: 360 MG, QD
     Route: 048
     Dates: start: 20180704
  6. JADENU [Concomitant]
     Active Substance: DEFERASIROX
     Dosage: 720 MG, QD
     Route: 048
     Dates: start: 201807

REACTIONS (5)
  - Platelet count decreased [Unknown]
  - Pleural effusion [Unknown]
  - Pneumonia [Unknown]
  - Musculoskeletal chest pain [Unknown]
  - Post procedural complication [Unknown]
